FAERS Safety Report 4650943-9 (Version None)
Quarter: 2005Q2

REPORT INFORMATION
  Report Type: 
  Country: None (occurrence: None)
  Receive Date: 20050503
  Receipt Date: 20050425
  Transmission Date: 20051028
  Serious: Yes (Other)
  Sender: FDA-Public Use
  Company Number: US-GLAXOSMITHKLINE-A0555491A

PATIENT
  Age: 80 Year
  Sex: Female
  Weight: 51 kg

DRUGS (8)
  1. TUMS ULTRA [Suspect]
     Route: 048
     Dates: start: 19850101
  2. FEOSOL IRON THERAPY CAPLETS [Concomitant]
     Dosage: 45MG PER DAY
     Dates: start: 20041001
  3. LISINOPRIL [Concomitant]
     Dosage: 5MG PER DAY
     Route: 048
  4. LEVOTHYROXINE SODIUM [Concomitant]
     Indication: HYPOTHYROIDISM
     Dosage: 88UG PER DAY
     Route: 048
  5. LIPITOR [Concomitant]
     Dosage: 10MG PER DAY
     Route: 048
  6. ACTONEL [Concomitant]
     Indication: OSTEOPOROSIS
     Dosage: 35MG WEEKLY
     Route: 048
  7. VITAMIN B-12 [Concomitant]
     Indication: NEUROPATHY
     Dosage: 2000MG MONTHLY
  8. TOPROL-XL [Concomitant]
     Dosage: 25MG PER DAY
     Route: 048

REACTIONS (4)
  - ARTHRALGIA [None]
  - BREAST CANCER [None]
  - BREAST MASS [None]
  - NAUSEA [None]
